FAERS Safety Report 21860071 (Version 1)
Quarter: 2023Q1

REPORT INFORMATION
  Report Type: Spontaneous
  Country: CN (occurrence: CN)
  Receive Date: 20230113
  Receipt Date: 20230113
  Transmission Date: 20230418
  Serious: Yes (Hospitalization, Other)
  Sender: FDA-Public Use
  Company Number: None

PATIENT
  Age: 59 Year
  Sex: Female
  Weight: 61 kg

DRUGS (7)
  1. CYCLOPHOSPHAMIDE [Suspect]
     Active Substance: CYCLOPHOSPHAMIDE
     Indication: Breast cancer female
     Dosage: FIRST CHEMOTHERAPY- 1.0 G, ONCE IN 21 DAYS (DILUTED WITH 50 ML OF 0.9% SODIUM CHLORIDE)
     Route: 041
     Dates: start: 20221116, end: 20221116
  2. SODIUM CHLORIDE [Suspect]
     Active Substance: SODIUM CHLORIDE
     Indication: Medication dilution
     Dosage: FIRST CHEMOTHERAPY- 50 ML, ONCE IN 21 DAYS (USED TO DILUTE 1.0 G CYCLOPHOSPHAMIDE)
     Route: 041
     Dates: start: 20221116, end: 20221116
  3. SODIUM CHLORIDE [Suspect]
     Active Substance: SODIUM CHLORIDE
     Dosage: FIRST CHEMOTHERAPY- 500 ML, ONCE IN 21 DAYS (USED TO DILUTE 100 MG DOCETAXEL)
     Route: 041
     Dates: start: 20221116, end: 20221116
  4. SODIUM CHLORIDE [Suspect]
     Active Substance: SODIUM CHLORIDE
     Dosage: FIRST CHEMOTHERAPY- 250 ML, ONCE IN 21 DAYS (USED TO DILUTE 44 MG TRASTUZUMAB)
     Route: 041
     Dates: start: 20221115, end: 20221115
  5. TAXOTERE [Suspect]
     Active Substance: DOCETAXEL
     Indication: Breast cancer female
     Dosage: FIRST CHEMOTHERAPY- 100 MG, ONCE IN 21 DAYS (DILUTED WITH 500 ML OF 0.9% SODIUM CHLORIDE)
     Route: 041
     Dates: start: 20221116, end: 20221116
  6. HERCEPTIN [Suspect]
     Active Substance: TRASTUZUMAB
     Indication: Breast cancer female
     Dosage: FIRST CHEMOTHERAPY- 44 MG, ONCE IN 21 DAYS (DILUTED WITH 250 ML OF 0.9% SODIUM CHLORIDE)
     Route: 041
     Dates: start: 20221115, end: 20221115
  7. HERCEPTIN [Suspect]
     Active Substance: TRASTUZUMAB
     Indication: Targeted cancer therapy

REACTIONS (2)
  - Agranulocytosis [Recovering/Resolving]
  - Asthenia [Unknown]

NARRATIVE: CASE EVENT DATE: 20221124
